FAERS Safety Report 9124643 (Version 1)
Quarter: 2013Q1

REPORT INFORMATION
  Report Type: Spontaneous
  Country: US (occurrence: US)
  Receive Date: 20130116
  Receipt Date: 20130116
  Transmission Date: 20140127
  Serious: No
  Sender: FDA-Public Use
  Company Number: US-PFIZER INC-2013014677

PATIENT
  Age: 70 Year
  Sex: Male
  Weight: 136 kg

DRUGS (2)
  1. VIAGRA [Suspect]
     Indication: ERECTILE DYSFUNCTION
     Dosage: ONE TABLET
     Route: 048
     Dates: start: 2007, end: 2007
  2. NITROSTAT [Suspect]
     Indication: ANGINA PECTORIS
     Dosage: ONE, PRN
     Route: 048
     Dates: start: 2006

REACTIONS (2)
  - Off label use [Unknown]
  - Drug ineffective [Unknown]
